FAERS Safety Report 6078743-6 (Version None)
Quarter: 2009Q1

REPORT INFORMATION
  Report Type: 
  Country: None (occurrence: None)
  Receive Date: 20090216
  Receipt Date: 20090206
  Transmission Date: 20090719
  Serious: Yes (Other)
  Sender: FDA-Public Use
  Company Number: US-BAYER-200910860NA

PATIENT
  Age: 32 Year
  Sex: Female
  Weight: 69 kg

DRUGS (1)
  1. MIRENA [Suspect]
     Indication: CONTRACEPTION
     Route: 015
     Dates: start: 20081223, end: 20090105

REACTIONS (5)
  - COMPLICATION OF DEVICE INSERTION [None]
  - MIGRAINE [None]
  - SALPINGITIS [None]
  - TENSION HEADACHE [None]
  - UTERINE RUPTURE [None]
